FAERS Safety Report 7618407-8 (Version None)
Quarter: 2011Q3

REPORT INFORMATION
  Report Type: 
  Country: None (occurrence: None)
  Receive Date: 20110718
  Receipt Date: 20110711
  Transmission Date: 20111222
  Serious: Yes (Hospitalization)
  Sender: FDA-Public Use
  Company Number: US-B.I. PHARMACEUTICALS,INC./RIDGEFIELD-2011-BP-15261BP

PATIENT
  Age: 63 Year
  Sex: Male

DRUGS (6)
  1. SPIRIVA [Concomitant]
     Dosage: 18 MCG
  2. SIMVASTATIN [Concomitant]
     Dosage: 20 MG
  3. ISOSORBIDE MONONITRATE [Concomitant]
     Dosage: 30 MG
  4. PRADAXA [Suspect]
     Indication: ATRIAL FIBRILLATION
     Dates: end: 20110601
  5. AMIODARONE HCL [Concomitant]
     Dosage: 200 UNK
  6. COREG [Concomitant]
     Dosage: 25 MG

REACTIONS (3)
  - GASTROINTESTINAL HAEMORRHAGE [None]
  - GASTROINTESTINAL EROSION [None]
  - ARTERIOVENOUS MALFORMATION [None]
